FAERS Safety Report 7316227-5 (Version None)
Quarter: 2011Q1

REPORT INFORMATION
  Report Type: 
  Country: None (occurrence: None)
  Receive Date: 20110225
  Receipt Date: 20110222
  Transmission Date: 20110831
  Serious: Yes (Hospitalization)
  Sender: FDA-Public Use
  Company Number: US-CEPHALON-2011000838

PATIENT
  Sex: Female
  Weight: 67 kg

DRUGS (19)
  1. ATIVAN [Concomitant]
     Dates: start: 20101207
  2. AREDIA [Concomitant]
  3. REVLIMID [Suspect]
     Indication: MULTIPLE MYELOMA
     Route: 048
     Dates: start: 20101207
  4. METOPROLOL SUCCINATE [Concomitant]
  5. GABAPENTIN [Concomitant]
  6. PRILOSEC [Concomitant]
  7. BENDAMUSTINE HCL [Suspect]
     Indication: MULTIPLE MYELOMA
     Route: 041
     Dates: start: 20101207
  8. NEULASTA [Concomitant]
     Dates: start: 20110106
  9. PENTAMIDINE ISETHIONATE [Concomitant]
     Dates: start: 20101208
  10. OXYCODONE [Concomitant]
     Dates: start: 20101207
  11. LOTREL [Concomitant]
  12. KLOR-CON [Concomitant]
     Dates: start: 20101221
  13. CLARINEX [Concomitant]
  14. DARVOCET [Concomitant]
  15. NEXIUM [Concomitant]
  16. DEXAMETHASONE [Suspect]
     Route: 048
     Dates: start: 20101207
  17. ALLEGRA [Concomitant]
  18. ASPIRIN [Concomitant]
  19. SIMVASTATIN [Concomitant]

REACTIONS (2)
  - VIRAL INFECTION [None]
  - DIARRHOEA HAEMORRHAGIC [None]
